FAERS Safety Report 20030251 (Version 3)
Quarter: 2021Q4

REPORT INFORMATION
  Report Type: Spontaneous
  Country: US (occurrence: US)
  Receive Date: 20211103
  Receipt Date: 20211223
  Transmission Date: 20220303
  Serious: No
  Sender: FDA-Public Use
  Company Number: US-PFIZER INC-202101333290

PATIENT
  Age: 12 Year
  Sex: Female

DRUGS (2)
  1. GENOTROPIN [Suspect]
     Active Substance: SOMATROPIN
     Dosage: 1.2 MG, ALTERNATE DAY (1 MG ALTERNATING WITH 1.2 MG)
     Dates: start: 20180825
  2. GENOTROPIN [Suspect]
     Active Substance: SOMATROPIN
     Dosage: 1 MG, ALTERNATE DAY (1 MG ALTERNATING WITH 1.2 MG)
     Dates: start: 20180825

REACTIONS (2)
  - Device breakage [Unknown]
  - Device mechanical issue [Unknown]
